FAERS Safety Report 21482066 (Version 4)
Quarter: 2023Q1

REPORT INFORMATION
  Report Type: Report from Study
  Country: US (occurrence: US)
  Receive Date: 20221020
  Receipt Date: 20230221
  Transmission Date: 20230418
  Serious: Yes (Other)
  Sender: FDA-Public Use
  Company Number: US-SUN PHARMACEUTICAL INDUSTRIES LTD-2022R1-359405

PATIENT
  Sex: Male

DRUGS (2)
  1. SONIDEGIB [Suspect]
     Active Substance: SONIDEGIB
     Indication: Basal cell carcinoma
     Dosage: 200 MILLIGRAM, DAILY
     Route: 065
     Dates: start: 20220616
  2. SONIDEGIB [Suspect]
     Active Substance: SONIDEGIB
     Dosage: 200 MILLIGRAM, DAILY
     Route: 065
     Dates: start: 20220419, end: 20230107

REACTIONS (5)
  - Fall [Unknown]
  - Joint injury [Unknown]
  - Neck mass [Recovered/Resolved]
  - Pruritus [Unknown]
  - Therapy cessation [Unknown]
